FAERS Safety Report 17413709 (Version 1)
Quarter: 2020Q1

REPORT INFORMATION
  Report Type: Report from Study
  Country: IN (occurrence: IN)
  Receive Date: 20200213
  Receipt Date: 20200213
  Transmission Date: 20200409
  Serious: Yes (Other)
  Sender: FDA-Public Use
  Company Number: IN-MYLANLABS-2020M1016048

PATIENT
  Sex: Male

DRUGS (4)
  1. TOPOTECAN [Suspect]
     Active Substance: TOPOTECAN HYDROCHLORIDE
     Indication: CONGENITAL RETINOBLASTOMA
     Dosage: ADMINISTERED FOR 3 CYCLES
     Route: 013
  2. TOPOTECAN [Suspect]
     Active Substance: TOPOTECAN HYDROCHLORIDE
     Dosage: ADJUNCT TREATMENT; ADMINISTERED FOR 2 CYCLES
  3. MELPHALAN. [Suspect]
     Active Substance: MELPHALAN
     Indication: CONGENITAL RETINOBLASTOMA
     Dosage: ADMINISTERED FOR 3 CYCLES
     Route: 013
  4. MELPHALAN. [Suspect]
     Active Substance: MELPHALAN
     Dosage: ADJUNCT TREATMENT; ADMINISTERED FOR 2 CYCLES

REACTIONS (3)
  - Iris atrophy [Unknown]
  - Iris adhesions [Unknown]
  - Cataract subcapsular [Unknown]
